FAERS Safety Report 6248994-6 (Version None)
Quarter: 2009Q2

REPORT INFORMATION
  Report Type: 
  Country: None (occurrence: None)
  Receive Date: 20090629
  Receipt Date: 20090618
  Transmission Date: 20091009
  Serious: Yes (Hospitalization, Other)
  Sender: FDA-Public Use
  Company Number: US-TYCO HEALTHCARE/MALLINCKRODT-T200901272

PATIENT
  Age: 84 Year
  Sex: Male

DRUGS (14)
  1. OPTIRAY 350 [Suspect]
     Indication: COMPUTERISED TOMOGRAM
     Dosage: UNK
     Route: 042
  2. OPTIRAY 350 [Suspect]
     Dosage: UNK
     Route: 042
  3. ASPIRIN [Concomitant]
  4. CARBIDOPA + LEVODOPA [Concomitant]
  5. FINASTERIDE [Concomitant]
  6. LISINOPRIL [Concomitant]
  7. INSULIN [Concomitant]
  8. PRAMIPEXOLE DIHYDROCHLORIDE [Concomitant]
  9. FUROSEMIDE INTENSOL [Concomitant]
  10. SIMVASTATIN [Concomitant]
  11. TERAZOSIN HCL [Concomitant]
  12. TAXOL [Concomitant]
     Indication: BLADDER CANCER STAGE IV
     Route: 042
  13. 5-FLUOROURACIL                     /00098801/ [Concomitant]
     Indication: BLADDER CANCER STAGE IV
     Route: 042
  14. CISPLATIN [Concomitant]
     Indication: BLADDER CANCER STAGE IV
     Route: 042

REACTIONS (2)
  - ACUTE GENERALISED EXANTHEMATOUS PUSTULOSIS [None]
  - RENAL IMPAIRMENT [None]
